FAERS Safety Report 9815753 (Version 1)
Quarter: 2014Q1

REPORT INFORMATION
  Report Type: Spontaneous
  Country: US (occurrence: US)
  Receive Date: 20140114
  Receipt Date: 20140114
  Transmission Date: 20141002
  Serious: Yes (Death)
  Sender: FDA-Public Use
  Company Number: US-PFIZER INC-2014005926

PATIENT
  Age: 54 Year
  Sex: Female

DRUGS (10)
  1. VENLAFAXINE HCL [Suspect]
     Dosage: UNK
     Route: 048
  2. MORPHINE SULFATE [Suspect]
     Dosage: UNK
     Route: 048
  3. ALPRAZOLAM [Suspect]
     Dosage: UNK
     Route: 048
  4. GABAPENTIN [Suspect]
     Dosage: UNK
     Route: 048
  5. HYDROCODONE W/ACETAMINOPHEN [Suspect]
     Dosage: UNK
     Route: 048
  6. MEPROBAMATE [Suspect]
     Dosage: UNK
     Route: 048
  7. CARISOPRODOL [Suspect]
     Dosage: UNK
     Route: 048
  8. DIPHENHYDRAMINE [Suspect]
     Dosage: UNK
     Route: 048
  9. QUETIAPINE [Suspect]
     Dosage: UNK
     Route: 048
  10. LAMOTRIGINE [Suspect]
     Dosage: UNK
     Route: 048

REACTIONS (3)
  - Completed suicide [Fatal]
  - Respiratory arrest [Fatal]
  - Cardiac arrest [Fatal]
